FAERS Safety Report 10657198 (Version 1)
Quarter: 2014Q4

REPORT INFORMATION
  Report Type: Spontaneous
  Country: GB (occurrence: MW)
  Receive Date: 20141217
  Receipt Date: 20141217
  Transmission Date: 20150529
  Serious: Yes (Hospitalization)
  Sender: FDA-Public Use
  Company Number: GB-CIPLA LTD.-2014MW02359

PATIENT

DRUGS (1)
  1. LAMIVUDINE/STAVUDINE/NEVIRAPINE [Suspect]
     Active Substance: LAMIVUDINE\NEVIRAPINE\STAVUDINE
     Indication: HEPATITIS B
     Dosage: UNK

REACTIONS (1)
  - Hospitalisation [Unknown]
